FAERS Safety Report 23787916 (Version 1)
Quarter: 2024Q2

REPORT INFORMATION
  Report Type: Spontaneous
  Country: NO (occurrence: NO)
  Receive Date: 20240426
  Receipt Date: 20240426
  Transmission Date: 20240716
  Serious: Yes (Life-Threatening, Other)
  Sender: FDA-Public Use
  Company Number: None

PATIENT
  Age: 27 Year
  Sex: Female
  Weight: 61 kg

DRUGS (2)
  1. DROSPIRENONE [Suspect]
     Active Substance: DROSPIRENONE
     Indication: Endometriosis
     Dosage: TABLET
     Route: 048
     Dates: start: 20230902, end: 20240310
  2. DROSPIRENONE [Suspect]
     Active Substance: DROSPIRENONE
     Indication: Contraception

REACTIONS (13)
  - Diarrhoea [Recovered/Resolved with Sequelae]
  - Menstruation irregular [Recovering/Resolving]
  - Migraine [Recovering/Resolving]
  - Nausea [Recovered/Resolved]
  - Depressed mood [Recovering/Resolving]
  - Hunger [Recovering/Resolving]
  - Suicidal ideation [Recovering/Resolving]
  - Weight increased [Recovering/Resolving]
  - Loss of libido [Recovered/Resolved]
  - Vulvovaginal dryness [Recovered/Resolved with Sequelae]
  - Acne [Recovering/Resolving]
  - Vulvovaginal pain [Recovered/Resolved with Sequelae]
  - Lack of satiety [Recovering/Resolving]

NARRATIVE: CASE EVENT DATE: 20230901
